FAERS Safety Report 11458882 (Version 1)
Quarter: 2015Q3

REPORT INFORMATION
  Report Type: Spontaneous
  Country: US (occurrence: US)
  Receive Date: 20150904
  Receipt Date: 20150904
  Transmission Date: 20151125
  Serious: Yes (Other)
  Sender: FDA-Public Use
  Company Number: US-JNJFOC-20150824520

PATIENT
  Sex: Female
  Weight: 99.34 kg

DRUGS (2)
  1. LETAIRIS [Concomitant]
     Active Substance: AMBRISENTAN
     Route: 065
  2. XARELTO [Suspect]
     Active Substance: RIVAROXABAN
     Indication: PRODUCT USED FOR UNKNOWN INDICATION
     Route: 048

REACTIONS (5)
  - Gastrooesophageal reflux disease [Unknown]
  - Pulmonary thrombosis [Unknown]
  - Abnormal clotting factor [Unknown]
  - Systemic lupus erythematosus [Unknown]
  - Varicose vein [Unknown]
